FAERS Safety Report 10978392 (Version 1)
Quarter: 2015Q1

REPORT INFORMATION
  Report Type: Report from Study
  Country: CH (occurrence: None)
  Receive Date: 20150330
  Receipt Date: 20150330
  Transmission Date: 20150721
  Serious: Yes (Hospitalization, Other)
  Sender: FDA-Public Use
  Company Number: ADR-2015-00597

PATIENT
  Age: 68 Year
  Sex: Male

DRUGS (6)
  1. BACLOFEN INTRATHECAL [Suspect]
     Active Substance: BACLOFEN
     Indication: MUSCLE SPASTICITY
     Dosage: SEE B5
     Dates: start: 20010401
  2. LISINOPRIL DIHYDRATE (LISINOPRIL DIHYDRATE) [Concomitant]
  3. TIZANIDINE HYDROCHLORIDE (TIZANIDINE HYDROCHLORIDE) [Concomitant]
  4. METOPROLOL (METOPROLOL) [Concomitant]
     Active Substance: METOPROLOL
  5. ZANAFLEX [Concomitant]
     Active Substance: TIZANIDINE HYDROCHLORIDE
  6. SIMVASTATIN (SIMVASTATIN) [Concomitant]
     Active Substance: SIMVASTATIN

REACTIONS (8)
  - Condition aggravated [None]
  - Central pain syndrome [None]
  - Pre-existing disease [None]
  - Pain in extremity [None]
  - Arthralgia [None]
  - Activities of daily living impaired [None]
  - Muscle spasticity [None]
  - Musculoskeletal pain [None]

NARRATIVE: CASE EVENT DATE: 20110801
